FAERS Safety Report 16388443 (Version 1)
Quarter: 2019Q2

REPORT INFORMATION
  Report Type: Spontaneous
  Country: US (occurrence: US)
  Receive Date: 20190429
  Receipt Date: 20190429
  Transmission Date: 20190711
  Serious: No
  Sender: FDA-Public Use
  Company Number: None

PATIENT
  Age: 47 Year
  Sex: Female

DRUGS (1)
  1. BENLYSTA [Suspect]
     Active Substance: BELIMUMAB
     Dates: start: 201804

REACTIONS (5)
  - Condition aggravated [None]
  - Injection site swelling [None]
  - Systemic lupus erythematosus [None]
  - Therapy cessation [None]
  - Injection site reaction [None]

NARRATIVE: CASE EVENT DATE: 20190429
